FAERS Safety Report 5536253-6 (Version None)
Quarter: 2007Q4

REPORT INFORMATION
  Report Type: 
  Country: None (occurrence: None)
  Receive Date: 20071206
  Receipt Date: 20071205
  Transmission Date: 20080405
  Serious: No
  Sender: FDA-Public Use
  Company Number: US-BOEHRINGER INGELHEIM PHARMACEUTICALS, INC.-2007-BP-25613BP

PATIENT
  Sex: Female

DRUGS (3)
  1. SPIRIVA [Suspect]
     Indication: BRONCHOSPASM
     Route: 055
     Dates: start: 20071128, end: 20071203
  2. ALLEGRA [Concomitant]
     Indication: HYPERSENSITIVITY
  3. NEXIUM [Concomitant]
     Indication: GASTROOESOPHAGEAL REFLUX DISEASE

REACTIONS (4)
  - EMOTIONAL DISORDER [None]
  - FEELING JITTERY [None]
  - PULMONARY CONGESTION [None]
  - SENSITIVITY OF TEETH [None]
